FAERS Safety Report 7745307-5 (Version None)
Quarter: 2011Q3

REPORT INFORMATION
  Report Type: 
  Country: None (occurrence: None)
  Receive Date: 20110913
  Receipt Date: 20110908
  Transmission Date: 20111222
  Serious: Yes (Hospitalization)
  Sender: FDA-Public Use
  Company Number: NL-AMGEN-NLDSP2011046210

PATIENT
  Age: 50 Year
  Sex: Female

DRUGS (9)
  1. DOCETAXEL [Suspect]
     Indication: BREAST CANCER
     Dosage: 120 MG, UNK
     Dates: start: 20110718, end: 20110808
  2. ACETAMINOPHEN [Concomitant]
     Dosage: 1000 MG, UNK
     Dates: start: 20110829
  3. MAGNESIUM OXIDE [Concomitant]
     Dosage: 500 MG, UNK
     Dates: start: 20110829
  4. NEULASTA [Suspect]
     Indication: CHEMOTHERAPY
     Dosage: UNK
  5. TEMAZEPAM [Concomitant]
     Dosage: 10 MG, UNK
     Dates: start: 20110830, end: 20110831
  6. CYCLOPHOSPHAMIDE [Suspect]
     Indication: BREAST CANCER
     Dosage: 780 MG, UNK
     Route: 042
     Dates: start: 20110718, end: 20110808
  7. MOVICOLON [Concomitant]
     Dosage: UNK
     Dates: start: 20110830
  8. DOXORUBICIN HCL [Suspect]
     Indication: BREAST CANCER
     Dosage: 78 MG, UNK
     Route: 042
     Dates: start: 20110718, end: 20110808
  9. LEVOTHYROXINE SODIUM [Concomitant]
     Dosage: 25 MUG, UNK
     Dates: start: 20110829

REACTIONS (1)
  - ANAL ABSCESS [None]
